FAERS Safety Report 8873709 (Version 1)
Quarter: 2012Q4

REPORT INFORMATION
  Report Type: 
  Country: IT (occurrence: IT)
  Receive Date: 20121030
  Receipt Date: 20121030
  Transmission Date: 20130627
  Serious: Yes (Other)
  Sender: FDA-Public Use
  Company Number: IT-VERTEX PHARMACEUTICAL INC.-2012-023571

PATIENT
  Age: 70 Year
  Sex: Male

DRUGS (1)
  1. VX-950 [Suspect]
     Indication: HEPATITIS C
     Dosage: UNK
     Route: 048
     Dates: start: 20120316, end: 20120604

REACTIONS (1)
  - Myocardial infarction [Recovered/Resolved]
